FAERS Safety Report 5399767-8 (Version None)
Quarter: 2007Q3

REPORT INFORMATION
  Report Type: 
  Country: None (occurrence: None)
  Receive Date: 20070727
  Receipt Date: 20070718
  Transmission Date: 20080115
  Serious: Yes (Other)
  Sender: FDA-Public Use
  Company Number: AT-PFIZER INC-2007060913

PATIENT
  Age: 18 Year
  Sex: Male

DRUGS (1)
  1. TRESLEEN [Suspect]
     Dates: start: 20060101, end: 20070101

REACTIONS (2)
  - MENTAL DISORDER [None]
  - PSYCHOMOTOR HYPERACTIVITY [None]
